FAERS Safety Report 6275940-1 (Version None)
Quarter: 2009Q3

REPORT INFORMATION
  Report Type: 
  Country: None (occurrence: None)
  Receive Date: 20090721
  Receipt Date: 20090709
  Transmission Date: 20100115
  Serious: Yes (Hospitalization)
  Sender: FDA-Public Use
  Company Number: JP-ASTRAZENECA-2009SE04034

PATIENT
  Sex: Male
  Weight: 64 kg

DRUGS (2)
  1. BLOPRESS [Suspect]
     Indication: HYPERTENSION
     Route: 048
     Dates: start: 20070101, end: 20090625
  2. DEPAS [Concomitant]
     Indication: INSOMNIA
     Route: 048
     Dates: end: 20090602

REACTIONS (1)
  - INTERSTITIAL LUNG DISEASE [None]
